FAERS Safety Report 19949079 (Version 2)
Quarter: 2021Q4

REPORT INFORMATION
  Report Type: Spontaneous
  Country: US (occurrence: US)
  Receive Date: 20211013
  Receipt Date: 20211118
  Transmission Date: 20220303
  Serious: No
  Sender: FDA-Public Use
  Company Number: US-SA-SAC20211011001137

PATIENT
  Age: 65 Year
  Sex: Male

DRUGS (5)
  1. DUPIXENT [Suspect]
     Active Substance: DUPILUMAB
     Indication: Psoriasis
     Dosage: 300 MG, QOW
     Route: 058
     Dates: start: 20210630
  2. TACROLIMUS [Concomitant]
     Active Substance: TACROLIMUS
  3. HYDROCORTISONE [Concomitant]
     Active Substance: HYDROCORTISONE
  4. VITAMINS [Concomitant]
     Active Substance: VITAMINS
  5. ELIDE [Concomitant]

REACTIONS (2)
  - Psoriasis [Unknown]
  - Product use in unapproved indication [Unknown]

NARRATIVE: CASE EVENT DATE: 20210101
